FAERS Safety Report 8189941-X (Version None)
Quarter: 2012Q1

REPORT INFORMATION
  Report Type: 
  Country: None (occurrence: None)
  Receive Date: 20120305
  Receipt Date: 20120222
  Transmission Date: 20120608
  Serious: Yes (Hospitalization)
  Sender: FDA-Public Use
  Company Number: US-2012-10039

PATIENT
  Age: 44 Year
  Sex: Female

DRUGS (3)
  1. OPC-41061 (TOLVAPTAN) TABLET, 15MG MILLIGRAM(S) [Suspect]
     Indication: CONGENITAL CYSTIC KIDNEY DISEASE
     Dosage: 120 MG MILLIGRAM(S), DAILY DOSE, ORAL
     Route: 048
     Dates: start: 20111013, end: 20120110
  2. PERINDOPRIL (PERINDOPRIL ERBUMINE) [Concomitant]
  3. MAGNESIUM (ALUMINUM HYDROXIDE, MAGNESIUM HYDROXIDE) [Concomitant]

REACTIONS (3)
  - HEPATITIS CHOLESTATIC [None]
  - JAUNDICE [None]
  - CYTOLYTIC HEPATITIS [None]
